FAERS Safety Report 23958679 (Version 1)
Quarter: 2024Q2

REPORT INFORMATION
  Report Type: Spontaneous
  Country: CN (occurrence: CN)
  Receive Date: 20240610
  Receipt Date: 20240610
  Transmission Date: 20240717
  Serious: Yes (Hospitalization, Other)
  Sender: FDA-Public Use
  Company Number: CN-NOVOPROD-1232107

PATIENT
  Age: 70 Year
  Sex: Female
  Weight: 72.5 kg

DRUGS (4)
  1. NOVOLIN R [Suspect]
     Active Substance: INSULIN HUMAN
     Indication: Type 2 diabetes mellitus
     Dosage: 7-8 U BEFORE LUNCH
     Dates: start: 2018
  2. NOVOLIN R [Suspect]
     Active Substance: INSULIN HUMAN
     Dosage: 30 IU, QD (10 U IN THE MORNING, 10 U AT NOON, AND 10 U IN THE EVENING)
     Dates: start: 20240515
  3. INSULIN GLARGINE [Concomitant]
     Active Substance: INSULIN GLARGINE
     Indication: Type 2 diabetes mellitus
     Dosage: 15 IU, QD (BEFORE SUPPER)
  4. INSULIN GLARGINE [Concomitant]
     Active Substance: INSULIN GLARGINE
     Dosage: 20 IU, QD (BEFORE SLEEP)
     Dates: start: 20240515

REACTIONS (2)
  - Fall [Unknown]
  - Femur fracture [Unknown]

NARRATIVE: CASE EVENT DATE: 20240515
